FAERS Safety Report 10439135 (Version 2)
Quarter: 2016Q2

REPORT INFORMATION
  Report Type: Spontaneous
  Country: US (occurrence: US)
  Receive Date: 20140908
  Receipt Date: 20160420
  Transmission Date: 20160815
  Serious: No
  Sender: FDA-Public Use
  Company Number: US-BRISTOL-MYERS SQUIBB COMPANY-20598306

PATIENT
  Sex: Female
  Weight: 74.83 kg

DRUGS (1)
  1. ABILIFY [Suspect]
     Active Substance: ARIPIPRAZOLE
     Indication: PRODUCT USED FOR UNKNOWN INDICATION
     Dosage: RESTARTED
     Route: 065
     Dates: start: 20140303

REACTIONS (4)
  - Palpitations [Unknown]
  - Headache [Unknown]
  - Drug dose omission [Unknown]
  - Tremor [Unknown]
